FAERS Safety Report 4625922-8 (Version None)
Quarter: 2005Q2

REPORT INFORMATION
  Report Type: 
  Country: None (occurrence: None)
  Receive Date: 20050404
  Receipt Date: 20050329
  Transmission Date: 20051028
  Serious: Yes (Other)
  Sender: FDA-Public Use
  Company Number: PHRM2005FR01193

PATIENT

DRUGS (1)
  1. HYDERGINE [Suspect]
     Route: 048

REACTIONS (1)
  - PLEURAL FIBROSIS [None]
